FAERS Safety Report 20834587 (Version 4)
Quarter: 2022Q3

REPORT INFORMATION
  Report Type: Report from Study
  Country: CA (occurrence: CA)
  Receive Date: 20220516
  Receipt Date: 20220903
  Transmission Date: 20221026
  Serious: Yes (Other)
  Sender: FDA-Public Use
  Company Number: CA-NOVARTISPH-NVSC2022CA029775

PATIENT
  Age: 56 Year
  Sex: Female

DRUGS (4)
  1. KESIMPTA [Suspect]
     Active Substance: OFATUMUMAB
     Indication: Relapsing-remitting multiple sclerosis
     Dosage: UNK
     Route: 058
     Dates: start: 20220201
  2. KESIMPTA [Suspect]
     Active Substance: OFATUMUMAB
     Dosage: UNK (3RD INJECTION ON TUESDAY EVENING)
     Route: 058
     Dates: start: 20220215
  3. KESIMPTA [Suspect]
     Active Substance: OFATUMUMAB
     Dosage: UNK (4TH INJECTION)
     Route: 058
     Dates: start: 20220301
  4. KESIMPTA [Suspect]
     Active Substance: OFATUMUMAB
     Dosage: UNK
     Route: 058
     Dates: start: 20220901

REACTIONS (7)
  - Retinal haemorrhage [Unknown]
  - Nasal congestion [Unknown]
  - Eczema [Unknown]
  - Pruritus [Unknown]
  - Hypoaesthesia [Unknown]
  - Hypoaesthesia oral [Unknown]
  - Injection site deformation [Unknown]

NARRATIVE: CASE EVENT DATE: 20220201
